FAERS Safety Report 10162000 (Version 1)
Quarter: 2014Q2

REPORT INFORMATION
  Report Type: Spontaneous
  Country: US (occurrence: None)
  Receive Date: 20140507
  Receipt Date: 20140507
  Transmission Date: 20141212
  Serious: Yes (Other)
  Sender: FDA-Public Use
  Company Number: 2014-US-005058

PATIENT
  Age: 66 Year
  Sex: Male

DRUGS (6)
  1. XYREM (SODIUM OXYBATE) ORAL SOLUTION, 500MG/ML [Suspect]
     Indication: NARCOLEPSY
     Route: 048
     Dates: start: 201311
  2. XYREM (SODIUM OXYBATE) ORAL SOLUTION, 500MG/ML [Suspect]
     Indication: SOMNOLENCE
     Route: 048
     Dates: start: 201311
  3. ONGLYZA [Suspect]
     Indication: TYPE 2 DIABETES MELLITUS
     Route: 048
  4. METFORMIN (METFORMIN HYDROCHLORIDE) [Suspect]
     Indication: TYPE 2 DIABETES MELLITUS
     Route: 048
  5. INVOKANA [Suspect]
     Indication: TYPE 2 DIABETES MELLITUS
     Route: 048
  6. BLOOD PRESSURE MEDICATIONS (ANTIHYPERTENSIVES) [Concomitant]

REACTIONS (4)
  - Convulsion [None]
  - Blood glucose decreased [None]
  - Blood potassium decreased [None]
  - Weight decreased [None]
